FAERS Safety Report 9157982 (Version 1)
Quarter: 2013Q1

REPORT INFORMATION
  Report Type: Spontaneous
  Country: US (occurrence: None)
  Receive Date: 20130307
  Receipt Date: 20130307
  Transmission Date: 20140127
  Serious: Yes (Hospitalization)
  Sender: FDA-Public Use
  Company Number: 2013US-004607

PATIENT
  Age: 90 Year
  Sex: Male
  Weight: 57 kg

DRUGS (15)
  1. OMONTYS (PEGINESATIDE) SOLUTION FOR INJECTION [Suspect]
     Indication: NEPHROGENIC ANAEMIA
     Route: 042
     Dates: start: 20121013, end: 20121013
  2. COREG [Suspect]
     Dosage: 6.25 MG, BID PRN, ORAL
     Route: 048
     Dates: end: 201212
  3. LOPRESSOR (METOPROLOL TARTRATE) [Suspect]
     Dosage: 25 MG, BID PRN, ORAL
     Route: 048
  4. CLONIDINE [Suspect]
     Dosage: 0.1MG, PM, ORAL
     Route: 048
  5. NORVASC (AMLODIPINE BESILATE) [Concomitant]
  6. DIOVAN (VALSARTAN) [Concomitant]
  7. MINOXIDIL (MINOXIDIL) [Concomitant]
  8. VITAMIN C [Concomitant]
  9. CALCIUM [Concomitant]
  10. FISH OIL [Concomitant]
  11. ASPIRIN (ACETYLSALICYLIC ACID) [Concomitant]
  12. RENAGEL (SEVELAMER( [Concomitant]
  13. NAMENDA (MEMANTINE HYDROCHLORIDE) [Concomitant]
  14. ARICEPT (DONEPEZIL HYDROCHLORIDE) [Concomitant]
  15. HECTOROL (DOXERCALCIFEROL) [Concomitant]

REACTIONS (12)
  - Pulmonary oedema [None]
  - Sinus arrest [None]
  - Bradycardia [None]
  - Syncope [None]
  - Convulsion [None]
  - Hypertensive crisis [None]
  - Nausea [None]
  - Vomiting [None]
  - Decreased appetite [None]
  - Asthenia [None]
  - Cough [None]
  - Blood pressure decreased [None]
